FAERS Safety Report 4428764-1 (Version None)
Quarter: 2004Q3

REPORT INFORMATION
  Report Type: 
  Country: None (occurrence: None)
  Receive Date: 20040818
  Receipt Date: 20040507
  Transmission Date: 20050211
  Serious: No
  Sender: FDA-Public Use
  Company Number: US-BRISTOL-MYERS SQUIBB COMPANY-12581716

PATIENT
  Age: 36 Year
  Sex: Female
  Weight: 100 kg

DRUGS (3)
  1. TEQUIN [Suspect]
     Indication: COUGH
     Dosage: EXPIRATION DATE 04-MAY-2005
     Route: 048
     Dates: start: 20040504, end: 20040506
  2. TEQUIN [Suspect]
     Indication: PULMONARY CONGESTION
     Dosage: EXPIRATION DATE 04-MAY-2005
     Route: 048
     Dates: start: 20040504, end: 20040506
  3. PREDNISONE [Concomitant]

REACTIONS (4)
  - DIARRHOEA [None]
  - DIZZINESS [None]
  - HEADACHE [None]
  - NAUSEA [None]
